FAERS Safety Report 7375895-2 (Version None)
Quarter: 2011Q1

REPORT INFORMATION
  Report Type: 
  Country: None (occurrence: None)
  Receive Date: 20110325
  Receipt Date: 20110316
  Transmission Date: 20110831
  Serious: Yes (Hospitalization)
  Sender: FDA-Public Use
  Company Number: B0699351A

PATIENT
  Age: 59 Year
  Sex: Female

DRUGS (1)
  1. AVANDAMET [Suspect]
     Indication: DIABETES MELLITUS
     Route: 048

REACTIONS (10)
  - FATIGUE [None]
  - ANXIETY [None]
  - MITRAL VALVE DISEASE [None]
  - INJURY [None]
  - MENTAL DISORDER [None]
  - EMOTIONAL DISORDER [None]
  - TRANSIENT ISCHAEMIC ATTACK [None]
  - CEREBROVASCULAR ACCIDENT [None]
  - PAIN [None]
  - AORTIC VALVE DISEASE [None]
